FAERS Safety Report 7230726-6 (Version None)
Quarter: 2011Q1

REPORT INFORMATION
  Report Type: 
  Country: None (occurrence: None)
  Receive Date: 20110118
  Receipt Date: 20110110
  Transmission Date: 20110831
  Serious: Yes (Other)
  Sender: FDA-Public Use
  Company Number: CA-JNJFOC-20110103149

PATIENT
  Sex: Female
  Weight: 34.7 kg

DRUGS (4)
  1. REMICADE [Suspect]
     Route: 042
  2. REMICADE [Suspect]
     Indication: CROHN'S DISEASE
     Dosage: 14TH INFUSION
     Route: 042
  3. REMICADE [Suspect]
     Route: 042
  4. ALESSE [Concomitant]
     Route: 065

REACTIONS (4)
  - WEIGHT INCREASED [None]
  - LYMPHADENOPATHY [None]
  - AXILLARY MASS [None]
  - TONSILLITIS [None]
